FAERS Safety Report 21618563 (Version 1)
Quarter: 2022Q4

REPORT INFORMATION
  Report Type: Spontaneous
  Country: US (occurrence: US)
  Receive Date: 20221119
  Receipt Date: 20221119
  Transmission Date: 20230113
  Serious: No
  Sender: FDA-Public Use
  Company Number: US-GSK-US2022165922

PATIENT

DRUGS (1)
  1. NUCALA [Suspect]
     Active Substance: MEPOLIZUMAB
     Indication: Eosinophil count
     Dosage: 300 MG
     Dates: start: 2021

REACTIONS (2)
  - Dyspnoea [Unknown]
  - Product dose omission issue [Unknown]
